FAERS Safety Report 20844257 (Version 1)
Quarter: 2022Q2

REPORT INFORMATION
  Report Type: Spontaneous
  Country: US (occurrence: None)
  Receive Date: 20220518
  Receipt Date: 20220518
  Transmission Date: 20220721
  Serious: Yes (Hospitalization)
  Sender: FDA-Public Use
  Company Number: None

PATIENT
  Sex: Female

DRUGS (2)
  1. PROHANCE [Suspect]
     Active Substance: GADOTERIDOL
  2. ProHance [Concomitant]

REACTIONS (8)
  - Contrast media allergy [None]
  - Pruritus [None]
  - Dyspnoea [None]
  - Cardio-respiratory arrest [None]
  - Urticaria [None]
  - Hypoaesthesia oral [None]
  - Throat tightness [None]
  - Flushing [None]

NARRATIVE: CASE EVENT DATE: 20220512
